FAERS Safety Report 8376652-0 (Version None)
Quarter: 2012Q2

REPORT INFORMATION
  Report Type: 
  Country: None (occurrence: None)
  Receive Date: 20120518
  Receipt Date: 20120507
  Transmission Date: 20120825
  Serious: Yes (Hospitalization)
  Sender: FDA-Public Use
  Company Number: AUR-APL-2012-02159

PATIENT
  Age: 79 Year
  Sex: Female

DRUGS (5)
  1. FLUTICASONE PROPIONATE/SALMETEROL [Concomitant]
  2. PAROXETINE HCL [Suspect]
     Indication: PRODUCT USED FOR UNKNOWN INDICATION
     Dosage: ORAL
     Route: 048
     Dates: start: 20090101, end: 20100102
  3. ALDACTONE [Suspect]
     Indication: HYPERTENSION
     Dosage: 25 MG, ORAL
     Route: 048
     Dates: start: 20090101, end: 20100102
  4. DIGOXIN [Suspect]
     Indication: PRODUCT USED FOR UNKNOWN INDICATION
     Dosage: ORAL
     Route: 048
     Dates: start: 20090101, end: 20100102
  5. NOCTAMID (LORMETAZEPAM) [Suspect]
     Indication: PRODUCT USED FOR UNKNOWN INDICATION
     Dosage: ORAL
     Route: 048
     Dates: start: 20090101, end: 20100102

REACTIONS (6)
  - DEHYDRATION [None]
  - HYPERNATRAEMIA [None]
  - DRUG INTERACTION [None]
  - TOXICITY TO VARIOUS AGENTS [None]
  - GENERAL PHYSICAL HEALTH DETERIORATION [None]
  - SOMNOLENCE [None]
